FAERS Safety Report 17361692 (Version 10)
Quarter: 2020Q1

REPORT INFORMATION
  Report Type: Report from Study
  Country: IL (occurrence: IL)
  Receive Date: 20200203
  Receipt Date: 20200323
  Transmission Date: 20200409
  Serious: Yes (Hospitalization)
  Sender: FDA-Public Use
  Company Number: IL-EISAI MEDICAL RESEARCH-EC-2020-069327

PATIENT
  Age: 70 Year
  Sex: Male
  Weight: 84 kg

DRUGS (23)
  1. PEMETREXED. [Suspect]
     Active Substance: PEMETREXED
     Indication: NON-SMALL CELL LUNG CANCER METASTATIC
     Route: 041
     Dates: start: 20190801, end: 20190822
  2. PEMETREXED. [Suspect]
     Active Substance: PEMETREXED
     Dosage: DOSE REDUCED
     Route: 041
     Dates: start: 20191023
  3. FLEET ENEMA [Suspect]
     Active Substance: SODIUM PHOSPHATE, DIBASIC\SODIUM PHOSPHATE, MONOBASIC
     Indication: CONSTIPATION
     Route: 054
     Dates: start: 20191001, end: 20191001
  4. PEMETREXED. [Suspect]
     Active Substance: PEMETREXED
     Route: 041
     Dates: start: 20190925, end: 20190925
  5. CISPLATIN. [Suspect]
     Active Substance: CISPLATIN
     Route: 041
     Dates: start: 20190925, end: 20190925
  6. LOSARTAN POTASSIUM. [Concomitant]
     Active Substance: LOSARTAN POTASSIUM
     Dates: start: 201902
  7. CYANOCOBALAMIN. [Concomitant]
     Active Substance: CYANOCOBALAMIN
     Route: 030
     Dates: start: 201909, end: 201909
  8. FOLIC ACID. [Concomitant]
     Active Substance: FOLIC ACID
     Dates: start: 20190708
  9. CISPLATIN. [Suspect]
     Active Substance: CISPLATIN
     Route: 041
     Dates: start: 20191023
  10. DEXAMETHASONE. [Concomitant]
     Active Substance: DEXAMETHASONE
     Dates: start: 20190925, end: 20190925
  11. AKYNZEO [Concomitant]
     Active Substance: NETUPITANT\PALONOSETRON HYDROCHLORIDE
     Dates: start: 20190925, end: 20190925
  12. MAGNESIUM [Concomitant]
     Active Substance: MAGNESIUM
     Dates: start: 201701
  13. UBIDECARENONE [Concomitant]
     Active Substance: UBIDECARENONE
     Dates: start: 201701
  14. FUSID [Concomitant]
     Dates: start: 20190925, end: 20190925
  15. PEMBROLIZUMAB. [Suspect]
     Active Substance: PEMBROLIZUMAB
     Route: 041
     Dates: start: 20190925, end: 20190925
  16. PEMBROLIZUMAB. [Suspect]
     Active Substance: PEMBROLIZUMAB
     Route: 041
     Dates: start: 20191023
  17. CALCIUM [Concomitant]
     Active Substance: CALCIUM
     Dates: start: 20190708
  18. ROSUVASTATIN. [Concomitant]
     Active Substance: ROSUVASTATIN
     Dates: start: 201706
  19. LENVATINIB [Suspect]
     Active Substance: LENVATINIB
     Indication: NON-SMALL CELL LUNG CANCER METASTATIC
     Route: 048
     Dates: start: 20190801
  20. PEMBROLIZUMAB. [Suspect]
     Active Substance: PEMBROLIZUMAB
     Indication: NON-SMALL CELL LUNG CANCER METASTATIC
     Route: 041
     Dates: start: 20190801, end: 20190822
  21. CISPLATIN. [Suspect]
     Active Substance: CISPLATIN
     Indication: NON-SMALL CELL LUNG CANCER METASTATIC
     Route: 041
     Dates: start: 20190801, end: 20190822
  22. XGEVA [Concomitant]
     Active Substance: DENOSUMAB
     Dates: start: 20190715
  23. DEXAMETHASONE. [Concomitant]
     Active Substance: DEXAMETHASONE
     Dates: start: 20190915, end: 20190927

REACTIONS (2)
  - Constipation [Recovered/Resolved]
  - Anaemia [Recovered/Resolved]

NARRATIVE: CASE EVENT DATE: 20190928
